FAERS Safety Report 14146864 (Version 5)
Quarter: 2023Q1

REPORT INFORMATION
  Report Type: Spontaneous
  Country: CA (occurrence: CA)
  Receive Date: 20171031
  Receipt Date: 20230317
  Transmission Date: 20230418
  Serious: Yes (Other)
  Sender: FDA-Public Use
  Company Number: E2B_00744227

PATIENT
  Age: 51 Year
  Sex: Male

DRUGS (19)
  1. PLAQUENIL [Suspect]
     Active Substance: HYDROXYCHLOROQUINE SULFATE
     Indication: Product used for unknown indication
     Dosage: 200 MG,BID
     Route: 048
     Dates: start: 1998, end: 2005
  2. ARAVA [Suspect]
     Active Substance: LEFLUNOMIDE
     Indication: Rheumatoid arthritis
     Dosage: 10 MG,QD
     Route: 048
     Dates: start: 2005, end: 2006
  3. ARAVA [Suspect]
     Active Substance: LEFLUNOMIDE
     Dosage: 40 MG, QOW
     Route: 065
     Dates: start: 20221115
  4. METHOTREXATE [Suspect]
     Active Substance: METHOTREXATE
     Indication: Product used for unknown indication
     Dosage: 25 MG,QW
     Route: 065
     Dates: start: 1998, end: 2013
  5. METHOTREXATE [Suspect]
     Active Substance: METHOTREXATE
     Dosage: 25 UNK
     Dates: start: 20220803, end: 20230210
  6. SULFASALAZINE [Suspect]
     Active Substance: SULFASALAZINE
     Dosage: UNK
  7. HYDROXYCHLOROQUINE SULFATE [Suspect]
     Active Substance: HYDROXYCHLOROQUINE SULFATE
     Dosage: UNK
     Dates: start: 20220803
  8. ENBREL [Suspect]
     Active Substance: ETANERCEPT
     Indication: Rheumatoid arthritis
     Dosage: 50 MG,QW
     Route: 058
     Dates: start: 200608, end: 200610
  9. ACTEMRA [Suspect]
     Active Substance: TOCILIZUMAB
     Indication: Product used for unknown indication
     Dosage: 4 MG/KG,UNK
     Route: 065
     Dates: start: 2013, end: 2014
  10. HUMIRA [Suspect]
     Active Substance: ADALIMUMAB
     Indication: Product used for unknown indication
     Dosage: 40 MG,QOW
     Route: 065
     Dates: start: 2008, end: 2009
  11. SIMPONI [Suspect]
     Active Substance: GOLIMUMAB
     Indication: Rheumatoid arthritis
     Dosage: 50 MG,QM
     Route: 058
     Dates: start: 200912, end: 2011
  12. ORENCIA [Suspect]
     Active Substance: ABATACEPT
     Indication: Rheumatoid arthritis
     Dosage: 750 MG,QM
     Route: 042
     Dates: start: 2014, end: 201510
  13. REMICADE [Suspect]
     Active Substance: INFLIXIMAB
     Indication: Product used for unknown indication
     Dosage: UNK UNK,UNK
     Route: 042
  14. RITUXAN [Suspect]
     Active Substance: RITUXIMAB
     Indication: Product used for unknown indication
     Dosage: 1 G,UNK
     Route: 042
     Dates: start: 2012, end: 2013
  15. PREDNISONE [Concomitant]
     Active Substance: PREDNISONE
     Dosage: UNK
  16. XELJANZ [Concomitant]
     Active Substance: TOFACITINIB CITRATE
     Dosage: UNK UNK,UNK
     Route: 065
     Dates: start: 20160324
  17. PREVACID [Concomitant]
     Active Substance: LANSOPRAZOLE
     Dosage: UNK UNK,UNK
     Route: 065
     Dates: start: 20160330
  18. IBUPROFEN [Concomitant]
     Active Substance: IBUPROFEN
     Dosage: UNK
  19. VIMOVO [Concomitant]
     Active Substance: ESOMEPRAZOLE MAGNESIUM\NAPROXEN

REACTIONS (20)
  - Cough [Recovered/Resolved]
  - Eye haemorrhage [Recovered/Resolved]
  - Gingival bleeding [Recovered/Resolved]
  - Liver function test increased [Recovered/Resolved]
  - Headache [Recovered/Resolved]
  - Diarrhoea [Recovered/Resolved]
  - Arthritis [Recovered/Resolved]
  - Dyspnoea [Recovered/Resolved]
  - Rash [Recovered/Resolved]
  - Syncope [Recovered/Resolved]
  - Urticaria [Recovered/Resolved]
  - Infection [Recovered/Resolved]
  - Loss of personal independence in daily activities [Not Recovered/Not Resolved]
  - Joint swelling [Not Recovered/Not Resolved]
  - Gastric disorder [Not Recovered/Not Resolved]
  - Liver function test abnormal [Not Recovered/Not Resolved]
  - Drug ineffective [Recovered/Resolved]
  - Nausea [Unknown]
  - Hypertension [Unknown]
  - Abdominal discomfort [Unknown]
